FAERS Safety Report 4594749-8 (Version None)
Quarter: 2005Q1

REPORT INFORMATION
  Report Type: 
  Country: None (occurrence: None)
  Receive Date: 20050301
  Receipt Date: 20050119
  Transmission Date: 20050727
  Serious: Yes (Other)
  Sender: FDA-Public Use
  Company Number: CA-BRISTOL-MYERS SQUIBB COMPANY-12834461

PATIENT
  Age: 58 Year
  Sex: Male
  Weight: 77 kg

DRUGS (8)
  1. CETUXIMAB [Suspect]
     Indication: COLORECTAL CANCER METASTATIC
     Dosage: CETUXIMAB INITIATED 01-NOV-04 (12 WEEKS ON TREATMENT). REGIMEN INTERRUPTED. LAST DOSE 12-JAN-2005.
     Route: 042
     Dates: start: 20050112, end: 20050112
  2. HYDROMORPH CONTIN [Concomitant]
     Indication: PAIN
     Dates: start: 20020901
  3. HYDROMORPHONE [Concomitant]
     Indication: PAIN
     Dates: start: 20020901
  4. ZOPICLONE [Concomitant]
     Indication: INSOMNIA
     Dates: start: 20021101
  5. DULCOLAX [Concomitant]
     Indication: CONSTIPATION
     Dates: start: 20021001
  6. DOCUSATE SODIUM [Concomitant]
     Indication: CONSTIPATION
     Dates: start: 20021001
  7. DALACIN [Concomitant]
     Indication: RASH
     Dosage: OINTMENT.
     Dates: start: 20041112
  8. PROCHLORPERAZINE [Concomitant]
     Indication: NAUSEA
     Dates: start: 20021001

REACTIONS (1)
  - HYPOMAGNESAEMIA [None]
